FAERS Safety Report 6406636-0 (Version None)
Quarter: 2009Q4

REPORT INFORMATION
  Report Type: 
  Country: None (occurrence: None)
  Receive Date: 20091014
  Receipt Date: 20091001
  Transmission Date: 20100525
  Serious: Yes (Disabling, Other)
  Sender: FDA-Public Use
  Company Number: 2009AL006476

PATIENT
  Age: 56 Year
  Sex: Female

DRUGS (2)
  1. DICLOFENAC SODIUM [Suspect]
     Indication: POSTOPERATIVE ANALGESIA
     Dosage: 50 MG;PO
     Route: 048
     Dates: start: 20090730, end: 20090802
  2. PARACETAMOL [Concomitant]

REACTIONS (4)
  - JAUNDICE [None]
  - LIVER FUNCTION TEST ABNORMAL [None]
  - LIVER INJURY [None]
  - RASH GENERALISED [None]
